FAERS Safety Report 7111496-9 (Version None)
Quarter: 2010Q4

REPORT INFORMATION
  Report Type: 
  Country: None (occurrence: None)
  Receive Date: 20101118
  Receipt Date: 20091130
  Transmission Date: 20110411
  Serious: No
  Sender: FDA-Public Use
  Company Number: US-TEVA-215994USA

PATIENT
  Sex: Female
  Weight: 58.566 kg

DRUGS (4)
  1. ALBUTEROL SULFATE AUTOHALER [Suspect]
     Indication: CHRONIC OBSTRUCTIVE PULMONARY DISEASE
     Dosage: 2-3 SPRAYS EVERY 6 HRS PRN
     Route: 055
     Dates: start: 20081201
  2. SERETIDE [Concomitant]
  3. AMLODIPINE [Concomitant]
  4. OMEPRAZOLE [Concomitant]

REACTIONS (1)
  - DRUG INEFFECTIVE [None]
